FAERS Safety Report 23064509 (Version 1)
Quarter: 2023Q4

REPORT INFORMATION
  Report Type: Spontaneous
  Country: US (occurrence: None)
  Receive Date: 20231013
  Receipt Date: 20231013
  Transmission Date: 20240110
  Serious: Yes (Hospitalization)
  Sender: FDA-Public Use
  Company Number: None

PATIENT
  Age: 74 Year
  Sex: Male
  Weight: 94 kg

DRUGS (2)
  1. CASIRIVIMAB [Suspect]
     Active Substance: CASIRIVIMAB
     Dosage: FREQUENCY : ONCE?
     Route: 042
     Dates: start: 20210830, end: 20210830
  2. IMDEVIMAB [Suspect]
     Active Substance: IMDEVIMAB
     Dosage: FREQUENCY: ONCE
     Route: 042
     Dates: start: 20210830, end: 20210830

REACTIONS (2)
  - Incorrect dose administered [None]
  - Accidental overdose [None]

NARRATIVE: CASE EVENT DATE: 20210830
